FAERS Safety Report 10159096 (Version 6)
Quarter: 2014Q2

REPORT INFORMATION
  Report Type: Report from Study
  Country: FR (occurrence: FR)
  Receive Date: 20140508
  Receipt Date: 20140526
  Transmission Date: 20141212
  Serious: Yes (Other)
  Sender: FDA-Public Use
  Company Number: FR-ROCHE-1392255

PATIENT
  Age: 82 Year
  Sex: Female
  Weight: 54 kg

DRUGS (13)
  1. OBINUTUZUMAB [Suspect]
     Indication: CHRONIC LYMPHOCYTIC LEUKAEMIA
     Dosage: CYCLE 1, DAY 1. INFUSION RATE: 12.5
     Route: 042
     Dates: start: 20140416, end: 20140416
  2. OBINUTUZUMAB [Suspect]
     Dosage: CYCLE 1 DAY 2. INFUSION RATE: 400
     Route: 042
     Dates: start: 20140417, end: 20140417
  3. OBINUTUZUMAB [Suspect]
     Dosage: CYCLE 1 DAY 8. INFUSION RATE: 400. MOST RECENT DOSE ON: 30/APR/2014
     Route: 042
     Dates: start: 20140423, end: 20140423
  4. OBINUTUZUMAB [Suspect]
     Route: 042
     Dates: end: 20140514
  5. BENDAMUSTINE [Suspect]
     Indication: CHRONIC LYMPHOCYTIC LEUKAEMIA
     Dosage: CYCLE 1 DAY 1. INFUSION RATE: 90
     Route: 042
     Dates: start: 20140416, end: 20140416
  6. BENDAMUSTINE [Suspect]
     Dosage: CYCLE 1 DAY 1. INFUSION RATE: 90. MOST RECENT DOSE: 17/APR/2014
     Route: 042
     Dates: start: 20140417, end: 20140417
  7. BENDAMUSTINE [Suspect]
     Route: 042
     Dates: end: 20140514
  8. DIOVENOR [Concomitant]
     Indication: PROPHYLAXIS
     Dosage: 1 PACKET
     Route: 048
     Dates: start: 201403, end: 20140416
  9. INEXIUM [Concomitant]
     Dosage: FROM DAY 1 TO 7 OF EACH CYCLE.
     Route: 048
     Dates: start: 20140416
  10. ZELITREX [Concomitant]
     Route: 048
     Dates: start: 20140416
  11. BACTRIM FORTE [Concomitant]
     Route: 048
     Dates: start: 20140416
  12. LEDERFOLINE [Concomitant]
     Route: 048
     Dates: start: 20140416
  13. ALLOPURINOL [Concomitant]
     Route: 048
     Dates: start: 20140416

REACTIONS (3)
  - Thrombocytopenia [Recovered/Resolved]
  - Neutrophil count decreased [Not Recovered/Not Resolved]
  - Anaemia [Recovered/Resolved]
